FAERS Safety Report 4630523-1 (Version None)
Quarter: 2005Q2

REPORT INFORMATION
  Report Type: 
  Country: None (occurrence: None)
  Receive Date: 20050408
  Receipt Date: 20040921
  Transmission Date: 20051028
  Serious: Yes (Other)
  Sender: FDA-Public Use
  Company Number: US-GLAXOSMITHKLINE-A0527567A

PATIENT
  Sex: Female
  Weight: 77.3 kg

DRUGS (2)
  1. PAXIL [Suspect]
     Indication: PANIC ATTACK
     Dosage: 20MG PER DAY
     Route: 048
     Dates: start: 20010920
  2. XANAX [Concomitant]
     Indication: ANXIETY
     Dosage: .25MG AS REQUIRED
     Route: 048
     Dates: start: 20010901

REACTIONS (6)
  - DEPENDENCE [None]
  - DRUG WITHDRAWAL SYNDROME [None]
  - HEADACHE [None]
  - PARAESTHESIA [None]
  - VOMITING [None]
  - WEIGHT INCREASED [None]
